FAERS Safety Report 5412626-7 (Version None)
Quarter: 2007Q3

REPORT INFORMATION
  Report Type: 
  Country: None (occurrence: None)
  Receive Date: 20070809
  Receipt Date: 20070731
  Transmission Date: 20080115
  Serious: Yes (Other)
  Sender: FDA-Public Use
  Company Number: 100#08#2007-02911

PATIENT
  Age: 58 Year
  Sex: Male

DRUGS (2)
  1. AZITHROMYCIN [Suspect]
     Indication: UPPER RESPIRATORY TRACT INFECTION
     Dosage: 500 MG; 3 DAYS (4 WEEKS PRIOR TO OCULAR COMPLAINTS); 3 DAYS (5 WEEKS PRIOR TO OCULAR COMPLAINTS)
     Route: 048
  2. AZITHROMYCIN [Suspect]
     Indication: UPPER RESPIRATORY TRACT INFECTION
     Dosage: 500 MG; 3 DAYS (4 WEEKS PRIOR TO OCULAR COMPLAINTS); 3 DAYS (5 WEEKS PRIOR TO OCULAR COMPLAINTS)
     Route: 048

REACTIONS (2)
  - CORNEAL OEDEMA [None]
  - KERATITIS HERPETIC [None]
